FAERS Safety Report 9590300 (Version 2)
Quarter: 2013Q4

REPORT INFORMATION
  Report Type: Spontaneous
  Country: US (occurrence: US)
  Receive Date: 20131003
  Receipt Date: 20131003
  Transmission Date: 20140711
  Serious: No
  Sender: FDA-Public Use
  Company Number: US-AMGEN-USASP2012075743

PATIENT
  Sex: Male

DRUGS (8)
  1. ENBREL [Suspect]
     Indication: RHEUMATOID ARTHRITIS
     Dosage: 50 MG, QWK
     Route: 058
  2. PRAVASTATIN [Concomitant]
     Dosage: 80 MG, UNK
  3. GLUCOSAMINE [Concomitant]
     Dosage: 500 MG, UNK
  4. ASPIRIN [Concomitant]
     Dosage: 81 MG, UNK
  5. METOPROLOL [Concomitant]
     Dosage: 100 MG, UNK
  6. VITAMIN C                          /00008001/ [Concomitant]
     Dosage: 500 MG, UNK
  7. CALCIUM +VIT D [Concomitant]
     Dosage: 500 UNK, UNK
  8. FISH OIL [Concomitant]
     Dosage: UNK

REACTIONS (1)
  - Herpes zoster [Recovered/Resolved]
